FAERS Safety Report 22637933 (Version 8)
Quarter: 2024Q3

REPORT INFORMATION
  Report Type: Report from Study
  Country: US (occurrence: US)
  Receive Date: 20230626
  Receipt Date: 20240930
  Transmission Date: 20241017
  Serious: Yes (Other)
  Sender: NOVARTIS
  Company Number: US-002147023-NVSC2023US144819

PATIENT
  Sex: Female

DRUGS (1)
  1. KESIMPTA [Suspect]
     Active Substance: OFATUMUMAB
     Indication: Multiple sclerosis
     Dosage: UNK
     Route: 065

REACTIONS (15)
  - Impaired gastric emptying [Unknown]
  - Neuropathy peripheral [Unknown]
  - Restless legs syndrome [Recovered/Resolved]
  - Pain [Unknown]
  - Insomnia [Unknown]
  - Headache [Recovered/Resolved]
  - Migraine [Unknown]
  - Hypoaesthesia [Unknown]
  - Temperature intolerance [Unknown]
  - COVID-19 [Unknown]
  - Spleen disorder [Unknown]
  - Pain in extremity [Unknown]
  - Fall [Unknown]
  - Mobility decreased [Unknown]
  - Asthenia [Unknown]
